FAERS Safety Report 8474622-5 (Version None)
Quarter: 2012Q2

REPORT INFORMATION
  Report Type: 
  Country: None (occurrence: None)
  Receive Date: 20120628
  Receipt Date: 20120619
  Transmission Date: 20120825
  Serious: Yes (Other)
  Sender: FDA-Public Use
  Company Number: FR-JNJFOC-20120609914

PATIENT

DRUGS (2)
  1. KETOCONAZOLE [Suspect]
     Indication: PRODUCT USED FOR UNKNOWN INDICATION
     Route: 065
  2. BILASTINE [Suspect]
     Indication: PRODUCT USED FOR UNKNOWN INDICATION
     Dosage: AT THERAPEUTIC AND SUPRATHERAPEUTIC DOSES (20 MG AND 100 MG) OR BILASTINE 20 MG WITH KETOCONAZOLE
     Route: 065

REACTIONS (1)
  - ELECTROCARDIOGRAM QT PROLONGED [None]
